FAERS Safety Report 16906869 (Version 2)
Quarter: 2019Q4

REPORT INFORMATION
  Report Type: Spontaneous
  Country: DE (occurrence: DE)
  Receive Date: 20191011
  Receipt Date: 20191018
  Transmission Date: 20200122
  Serious: Yes (Other)
  Sender: FDA-Public Use
  Company Number: DE-TEVA-2019-DE-1118967

PATIENT
  Sex: Male

DRUGS (22)
  1. FENOTEROL [Concomitant]
     Active Substance: FENOTEROL
     Indication: ASTHMA
  2. MONTELUKAST [Concomitant]
     Active Substance: MONTELUKAST SODIUM
     Indication: ASTHMA
  3. FLUTICASONE FUROATE/VILANTEROL [Suspect]
     Active Substance: FLUTICASONE FUROATE\VILANTEROL TRIFENATATE
     Indication: ASTHMA
  4. SALBUTAMOL [Concomitant]
     Active Substance: ALBUTEROL
     Indication: ASTHMA
  5. IPRATROPIUM-BROMIDE [Concomitant]
     Indication: ASTHMA
     Route: 055
  6. IPRATROPIUM-BROMIDE [Concomitant]
     Indication: ASTHMA
  7. BECLOMETHASONE [Suspect]
     Active Substance: BECLOMETHASONE
     Indication: ASTHMA
     Route: 055
  8. FLUTICASONE. [Suspect]
     Active Substance: FLUTICASONE
     Indication: ASTHMA
     Route: 055
  9. TIOTROPIUM BROMIDE [Concomitant]
     Active Substance: TIOTROPIUM BROMIDE
     Indication: ASTHMA
     Route: 055
  10. SALMETEROL XINAFOATE/FLUTICASONE-17-PROPIONATE [Suspect]
     Active Substance: FLUTICASONE PROPIONATE\SALMETEROL XINAFOATE
     Indication: ASTHMA
  11. FLUTICASONE FUROATE/VILANTEROL [Suspect]
     Active Substance: FLUTICASONE FUROATE\VILANTEROL TRIFENATATE
     Indication: ASTHMA
     Dosage: VILANTEROL: 22 MICROGRAM; FLUTICASONE FUROATE: 92 MICROGRAM
     Route: 055
  12. SALBUTAMOL [Concomitant]
     Active Substance: ALBUTEROL
     Indication: ASTHMA
     Route: 055
  13. FLUTICASONE. [Suspect]
     Active Substance: FLUTICASONE
     Indication: ASTHMA
  14. CETIRIZINE [Concomitant]
     Active Substance: CETIRIZINE HYDROCHLORIDE
     Indication: ASTHMA
     Route: 065
  15. FENOTEROL [Concomitant]
     Active Substance: FENOTEROL
     Indication: ASTHMA
     Route: 055
  16. CETIRIZINE [Concomitant]
     Active Substance: CETIRIZINE HYDROCHLORIDE
     Indication: ASTHMA
  17. TIOTROPIUM BROMIDE [Concomitant]
     Active Substance: TIOTROPIUM BROMIDE
     Indication: ASTHMA
  18. MONTELUKAST [Concomitant]
     Active Substance: MONTELUKAST SODIUM
     Indication: ASTHMA
     Route: 065
  19. BECLOMETHASONE [Suspect]
     Active Substance: BECLOMETHASONE
     Indication: ASTHMA
  20. SALMETEROL XINAFOATE/FLUTICASONE-17-PROPIONATE [Suspect]
     Active Substance: FLUTICASONE PROPIONATE\SALMETEROL XINAFOATE
     Indication: ASTHMA
     Dosage: SALMETEROL: 25 MICROGRAM; FLUTICASONE PROPIONATE: 125 MICROGRAM
     Route: 055
  21. MOMETASONE [Suspect]
     Active Substance: MOMETASONE
     Indication: ASTHMA
     Route: 055
  22. MOMETASONE [Suspect]
     Active Substance: MOMETASONE
     Indication: ASTHMA

REACTIONS (2)
  - Chorioretinopathy [Unknown]
  - Disease progression [Unknown]
